FAERS Safety Report 5253858-0 (Version None)
Quarter: 2007Q1

REPORT INFORMATION
  Report Type: 
  Country: None (occurrence: None)
  Receive Date: 20070227
  Receipt Date: 20070216
  Transmission Date: 20070707
  Serious: Yes (Other)
  Sender: FDA-Public Use
  Company Number: SPV1-2007-00835

PATIENT
  Age: 11 Year
  Sex: Female

DRUGS (3)
  1. DAYTRANA [Suspect]
     Indication: ATTENTION DEFICIT/HYPERACTIVITY DISORDER
     Dosage: 10 MG, TRANSDERMAL
     Route: 062
     Dates: start: 20070101
  2. KEPPRA [Concomitant]
  3. TOPAMAX [Concomitant]

REACTIONS (2)
  - CONVULSION [None]
  - EYE PAIN [None]
